FAERS Safety Report 4868071-6 (Version None)
Quarter: 2005Q4

REPORT INFORMATION
  Report Type: 
  Country: None (occurrence: None)
  Receive Date: 20051229
  Receipt Date: 20051220
  Transmission Date: 20060501
  Serious: Yes (Hospitalization)
  Sender: FDA-Public Use
  Company Number: PHBS2005IT18866

PATIENT
  Age: 65 Year
  Sex: Male

DRUGS (5)
  1. ZOMETA [Suspect]
     Indication: METASTASES TO BONE
     Dosage: 4 MG, QMO
     Route: 042
     Dates: start: 20030501
  2. ANTINEOPLASTIC AGENTS [Concomitant]
     Dates: start: 19930101
  3. THALIDOMIDE [Concomitant]
     Dates: start: 20020101, end: 20050501
  4. CORTISONE ACETATE TAB [Concomitant]
     Dates: start: 19930101
  5. AREDIA [Suspect]
     Indication: METASTASES TO BONE
     Dosage: 90 MG, QMO
     Route: 042
     Dates: start: 19990101, end: 20030101

REACTIONS (5)
  - BONE LESION EXCISION [None]
  - JAW OPERATION [None]
  - OSTEOMYELITIS CHRONIC [None]
  - TOOTH EXTRACTION [None]
  - WOUND DEBRIDEMENT [None]
